FAERS Safety Report 19760464 (Version 2)
Quarter: 2025Q3

REPORT INFORMATION
  Report Type: Spontaneous
  Country: EU (occurrence: EU)
  Receive Date: 20210830
  Receipt Date: 20250717
  Transmission Date: 20251021
  Serious: Yes (Disabling)
  Sender: AUROBINDO
  Company Number: EU-MYLANLABS-2021M1006410

PATIENT
  Age: 41 Year
  Sex: Female

DRUGS (8)
  1. ZOLPIDEM [Suspect]
     Active Substance: ZOLPIDEM TARTRATE
     Indication: Product used for unknown indication
     Route: 065
  2. ESTAZOLAM [Suspect]
     Active Substance: ESTAZOLAM
     Indication: Product used for unknown indication
     Route: 065
  3. QUETIAPINE [Suspect]
     Active Substance: QUETIAPINE
     Indication: Insomnia
     Route: 065
  4. HUMULUS LUPULUS [Concomitant]
     Active Substance: HOPS
     Indication: Product used for unknown indication
     Route: 065
  5. MAGNESIUM OXIDE\PYRIDOXINE HYDROCHLORIDE [Concomitant]
     Active Substance: MAGNESIUM OXIDE\PYRIDOXINE HYDROCHLORIDE
     Indication: Product used for unknown indication
     Route: 065
  6. HERBALS\HOMEOPATHICS\MELISSA OFFICINALIS [Concomitant]
     Active Substance: HERBALS\HOMEOPATHICS\MELISSA OFFICINALIS
     Indication: Product used for unknown indication
     Route: 065
  7. MELATONIN [Concomitant]
     Active Substance: MELATONIN
     Indication: Product used for unknown indication
     Route: 065
  8. Passiflora edulis [Concomitant]
     Indication: Product used for unknown indication
     Route: 065

REACTIONS (4)
  - Somnolence [Unknown]
  - Dizziness [Unknown]
  - Paradoxical drug reaction [Unknown]
  - Off label use [Unknown]
